FAERS Safety Report 6266381-1 (Version None)
Quarter: 2009Q3

REPORT INFORMATION
  Report Type: 
  Country: None (occurrence: None)
  Receive Date: 20090713
  Receipt Date: 20090707
  Transmission Date: 20100115
  Serious: Yes (Hospitalization)
  Sender: FDA-Public Use
  Company Number: GR-PFIZER INC-2009236776

PATIENT

DRUGS (2)
  1. LIPITOR [Suspect]
     Dosage: UNK
     Route: 048
  2. NEURONTIN [Suspect]
     Dosage: UNK
     Route: 048
     Dates: start: 20090401, end: 20090601

REACTIONS (6)
  - CONFUSIONAL STATE [None]
  - DIZZINESS [None]
  - GASTRIC HAEMORRHAGE [None]
  - HEPATIC STEATOSIS [None]
  - TRANSAMINASES INCREASED [None]
  - VISION BLURRED [None]
